FAERS Safety Report 6759853-4 (Version None)
Quarter: 2010Q2

REPORT INFORMATION
  Report Type: 
  Country: None (occurrence: None)
  Receive Date: 20100608
  Receipt Date: 20100528
  Transmission Date: 20101027
  Serious: Yes (Hospitalization, Other)
  Sender: FDA-Public Use
  Company Number: PHHO2010JP06325

PATIENT
  Age: 39 Year
  Sex: Female
  Weight: 52.608 kg

DRUGS (8)
  1. VOLTAREN [Suspect]
     Indication: RHEUMATOID ARTHRITIS
     Dosage: 3X/DAY
     Route: 048
     Dates: start: 20090407, end: 20100401
  2. VOLTAREN [Suspect]
     Dosage: NO TREATMENT
     Dates: start: 20100402, end: 20100414
  3. VOLTAREN [Suspect]
     Dosage: PRN
     Dates: start: 20100415
  4. METHOTREXATE [Suspect]
     Indication: RHEUMATOID ARTHRITIS
     Dosage: WEEK
     Route: 048
     Dates: start: 20090817, end: 20100324
  5. PREDNISOLONE [Suspect]
     Indication: RHEUMATOID ARTHRITIS
     Dosage: DAY
     Route: 048
     Dates: start: 20090917, end: 20100401
  6. MUCOSTA [Concomitant]
  7. FOLIAMIN [Concomitant]
  8. ISCOTIN [Concomitant]

REACTIONS (7)
  - ABDOMINAL PAIN [None]
  - ABDOMINAL REBOUND TENDERNESS [None]
  - ACUTE ABDOMEN [None]
  - ENTEROCOLITIS INFECTIOUS [None]
  - GASTROINTESTINAL INFLAMMATION [None]
  - PERITONEAL DISORDER [None]
  - PYREXIA [None]
